FAERS Safety Report 6615532-5 (Version None)
Quarter: 2010Q1

REPORT INFORMATION
  Report Type: 
  Country: None (occurrence: None)
  Receive Date: 20100305
  Receipt Date: 20100224
  Transmission Date: 20100710
  Serious: Yes (Other)
  Sender: FDA-Public Use
  Company Number: US-ROCHE-657078

PATIENT
  Sex: Male

DRUGS (4)
  1. PEG-INTERFERON A-2A (RO 25-8310) [Suspect]
     Indication: HEPATITIS C
     Route: 065
     Dates: start: 20090102
  2. PEG-INTERFERON A-2A (RO 25-8310) [Suspect]
     Dosage: FORM: PRE-FILLED SYRINGE; IN WEEK 40 OF TREATMENT, DOSE REDUCED
     Route: 065
     Dates: end: 20100210
  3. RIBAVIRIN [Suspect]
     Indication: HEPATITIS C
     Dosage: EVERYDAY, IN WEEK 40 OF TREATMENT
     Route: 065
     Dates: start: 20090102
  4. RIBAVIRIN [Suspect]
     Dosage: DOSE REDUCED
     Route: 065
     Dates: start: 20091101, end: 20100210

REACTIONS (7)
  - ANAEMIA [None]
  - DIZZINESS [None]
  - DYSPNOEA [None]
  - FATIGUE [None]
  - HEPATIC NEOPLASM MALIGNANT [None]
  - HEPATIC PAIN [None]
  - NAUSEA [None]
